FAERS Safety Report 11772313 (Version 2)
Quarter: 2015Q4

REPORT INFORMATION
  Report Type: Spontaneous
  Country: US (occurrence: US)
  Receive Date: 20151124
  Receipt Date: 20151130
  Transmission Date: 20160304
  Serious: No
  Sender: FDA-Public Use
  Company Number: US-BAYER-2015-474737

PATIENT
  Sex: Male

DRUGS (1)
  1. STIVARGA [Suspect]
     Active Substance: REGORAFENIB
     Dosage: 80 MG, QD
     Route: 048
     Dates: start: 2015, end: 2015

REACTIONS (5)
  - Unevaluable event [None]
  - Blister [None]
  - Dysphonia [None]
  - Diarrhoea [None]
  - Skin reaction [None]
